FAERS Safety Report 7572313-6 (Version None)
Quarter: 2011Q2

REPORT INFORMATION
  Report Type: 
  Country: None (occurrence: None)
  Receive Date: 20110624
  Receipt Date: 20110622
  Transmission Date: 20111010
  Serious: Yes (Disabling)
  Sender: FDA-Public Use
  Company Number: DE-AMGEN-DEUCT2011022763

PATIENT
  Age: 71 Year
  Sex: Female

DRUGS (2)
  1. DENOSUMAB [Suspect]
     Indication: OSTEOPOROSIS POSTMENOPAUSAL
     Dosage: 60 MG, UNK
     Route: 058
     Dates: start: 20101012
  2. TAMBOCOR [Concomitant]
     Dosage: 100 MG, UNK
     Route: 048
     Dates: start: 19950101, end: 20110423

REACTIONS (2)
  - ATRIAL FIBRILLATION [None]
  - VENTRICULAR EXTRASYSTOLES [None]
